FAERS Safety Report 20723721 (Version 2)
Quarter: 2022Q2

REPORT INFORMATION
  Report Type: Spontaneous
  Country: JP (occurrence: JP)
  Receive Date: 20220419
  Receipt Date: 20220427
  Transmission Date: 20220720
  Serious: Yes (Other)
  Sender: FDA-Public Use
  Company Number: JP-Teva Takeda Yakuhin-2022-JP-001598J

PATIENT
  Age: 43 Year
  Sex: Female

DRUGS (2)
  1. CERCINE [Suspect]
     Active Substance: DIAZEPAM
     Indication: Endoscopy
     Route: 065
     Dates: start: 20220413, end: 20220413
  2. PETHILORFAN [Concomitant]
     Indication: Endoscopy
     Route: 065

REACTIONS (5)
  - Haemorrhage subcutaneous [Unknown]
  - Arthralgia [Unknown]
  - Swelling [Unknown]
  - Erythema [Unknown]
  - Product use in unapproved indication [Unknown]

NARRATIVE: CASE EVENT DATE: 20220413
